FAERS Safety Report 9825437 (Version 1)
Quarter: 2014Q1

REPORT INFORMATION
  Report Type: Spontaneous
  Country: US (occurrence: US)
  Receive Date: 20140117
  Receipt Date: 20140117
  Transmission Date: 20141002
  Serious: No
  Sender: FDA-Public Use
  Company Number: US-PFIZER INC-2014014449

PATIENT
  Sex: Female

DRUGS (3)
  1. ZOLOFT [Suspect]
     Indication: ANXIETY
     Dosage: 50 MG, UNK
     Dates: start: 201312
  2. ZOLOFT [Suspect]
     Indication: DEPRESSION
     Dosage: UNK
  3. VITAMIN D [Concomitant]
     Dosage: 4000 MG, UNK

REACTIONS (4)
  - Tongue blistering [Unknown]
  - Mouth ulceration [Unknown]
  - Aphthous stomatitis [Unknown]
  - Dry mouth [Unknown]
